FAERS Safety Report 4575821-5 (Version None)
Quarter: 2005Q1

REPORT INFORMATION
  Report Type: 
  Country: None (occurrence: None)
  Receive Date: 20050209
  Receipt Date: 20050121
  Transmission Date: 20050727
  Serious: Yes (Life-Threatening, Disabling)
  Sender: FDA-Public Use
  Company Number: US-MERCK-0501USA03433

PATIENT
  Age: 55 Year
  Sex: Female

DRUGS (11)
  1. FOSAMAX [Suspect]
     Indication: OSTEOPOROSIS
     Route: 048
     Dates: start: 20050105, end: 20050118
  2. KEPPRA [Concomitant]
     Route: 065
  3. ASPIRIN [Concomitant]
     Route: 065
  4. LEVOXYL [Concomitant]
     Route: 065
  5. CALCIUM (UNSPECIFIED) [Concomitant]
     Route: 065
  6. VITAMIN D (UNSPECIFIED) [Concomitant]
     Route: 065
  7. LIPITOR [Concomitant]
     Route: 065
  8. VITAMINS (UNSPECIFIED) [Concomitant]
     Route: 065
  9. LASIX [Concomitant]
     Route: 065
  10. LANTUS [Concomitant]
     Route: 065
  11. HUMALOG [Concomitant]
     Route: 065

REACTIONS (3)
  - JOINT SWELLING [None]
  - OEDEMA PERIPHERAL [None]
  - RASH [None]
